FAERS Safety Report 20572703 (Version 2)
Quarter: 2022Q2

REPORT INFORMATION
  Report Type: Report from Study
  Country: US (occurrence: US)
  Receive Date: 20220309
  Receipt Date: 20220404
  Transmission Date: 20220720
  Serious: Yes (Hospitalization)
  Sender: FDA-Public Use
  Company Number: US-EXELIXIS-CABO-22048811

PATIENT
  Age: 47 Year
  Sex: Male

DRUGS (13)
  1. CABOMETYX [Suspect]
     Active Substance: CABOZANTINIB S-MALATE
     Indication: Leiomyosarcoma
     Dosage: 20 MG
     Dates: start: 20211227, end: 202201
  2. CABOMETYX [Suspect]
     Active Substance: CABOZANTINIB S-MALATE
     Indication: Malignant connective tissue neoplasm
     Dosage: 20 MG, QOD
     Dates: start: 202201
  3. CABOMETYX [Suspect]
     Active Substance: CABOZANTINIB S-MALATE
     Indication: Soft tissue sarcoma
  4. CORLANOR [Concomitant]
     Active Substance: IVABRADINE HYDROCHLORIDE
  5. DAPSONE [Concomitant]
     Active Substance: DAPSONE
  6. VITAMIN B12 [Concomitant]
     Active Substance: CYANOCOBALAMIN
  7. FOLIC ACID [Concomitant]
     Active Substance: FOLIC ACID
  8. LORATADINE [Concomitant]
     Active Substance: LORATADINE
  9. AMLODIPINE [Concomitant]
     Active Substance: AMLODIPINE BESYLATE
  10. BISOPROLOL FUMARATE [Concomitant]
     Active Substance: BISOPROLOL FUMARATE
  11. ROSUVASTATIN [Concomitant]
     Active Substance: ROSUVASTATIN
  12. OXYCODONE [Concomitant]
     Active Substance: OXYCODONE
  13. POTASSIUM [Concomitant]
     Active Substance: POTASSIUM

REACTIONS (10)
  - Scan abnormal [Unknown]
  - Pneumonia [Unknown]
  - Laboratory test abnormal [Unknown]
  - Hepatic enzyme increased [Unknown]
  - Dry skin [Unknown]
  - Diarrhoea [Recovered/Resolved]
  - Neoplasm [Unknown]
  - Malignant neoplasm progression [Unknown]
  - Off label use [Unknown]
  - Inappropriate schedule of product administration [Unknown]

NARRATIVE: CASE EVENT DATE: 20220214
